FAERS Safety Report 9349290 (Version 2)
Quarter: 2013Q4

REPORT INFORMATION
  Report Type: Spontaneous
  Country: US (occurrence: US)
  Receive Date: 20130614
  Receipt Date: 20131122
  Transmission Date: 20140711
  Serious: Yes (Death, Hospitalization)
  Sender: FDA-Public Use
  Company Number: US-B.I. PHARMACEUTICALS,INC./RIDGEFIELD-2013-BI-16424BP

PATIENT
  Age: 95 Year
  Sex: Female
  Weight: 68.04 kg

DRUGS (8)
  1. PRADAXA [Suspect]
     Indication: ATRIAL FIBRILLATION
     Dosage: 150 MG
     Dates: start: 201101, end: 20110606
  2. SYNTHROID [Concomitant]
  3. TRAZODONE [Concomitant]
     Dosage: 50 MG
  4. MEGACE [Concomitant]
     Dosage: 20 MG
  5. IRON SULFATE [Concomitant]
     Dosage: 325 MG
  6. NORVASC [Concomitant]
     Dosage: 10 MG
  7. HYDROCHLOROTHIAZIDE [Concomitant]
     Dosage: 25 MG
  8. AMIODARONE [Concomitant]
     Indication: ATRIAL FIBRILLATION
     Dosage: 400 MG

REACTIONS (9)
  - Haemorrhage [Fatal]
  - Retroperitoneal haematoma [Fatal]
  - Hypovolaemic shock [Fatal]
  - Pneumonia [Fatal]
  - Anaemia [Unknown]
  - Renal failure acute [Recovered/Resolved]
  - Fall [Unknown]
  - Acetabulum fracture [Unknown]
  - Convulsion [Recovered/Resolved]
